FAERS Safety Report 13896688 (Version 1)
Quarter: 2017Q3

REPORT INFORMATION
  Report Type: Spontaneous
  Country: US (occurrence: None)
  Receive Date: 20170817
  Receipt Date: 20170817
  Transmission Date: 20171127
  Serious: No
  Sender: FDA-Public Use
  Company Number: None

PATIENT
  Sex: Female

DRUGS (1)
  1. PROLIA [Suspect]
     Active Substance: DENOSUMAB
     Indication: SENILE OSTEOPOROSIS
     Dosage: 60MG Q 6 MO SUBQ
     Route: 058

REACTIONS (5)
  - Fatigue [None]
  - Myalgia [None]
  - Cough [None]
  - Aphonia [None]
  - Dysphonia [None]
